FAERS Safety Report 5117591-8 (Version None)
Quarter: 2006Q3

REPORT INFORMATION
  Report Type: 
  Country: None (occurrence: None)
  Receive Date: 20060929
  Receipt Date: 20060919
  Transmission Date: 20061208
  Serious: Yes (Death)
  Sender: FDA-Public Use
  Company Number: US-ROCHE-464181

PATIENT
  Sex: Female

DRUGS (2)
  1. ROCEPHIN [Suspect]
     Indication: LUNG INFECTION
     Route: 042
  2. GEMCITABINE [Concomitant]

REACTIONS (1)
  - THROMBOTIC MICROANGIOPATHY [None]
